FAERS Safety Report 5655568-4 (Version None)
Quarter: 2008Q1

REPORT INFORMATION
  Report Type: 
  Country: None (occurrence: None)
  Receive Date: 20080307
  Receipt Date: 20080225
  Transmission Date: 20080703
  Serious: Yes (Hospitalization)
  Sender: FDA-Public Use
  Company Number: GB-ROCHE-549422

PATIENT
  Age: 61 Year
  Sex: Female

DRUGS (2)
  1. CAPECITABINE [Suspect]
     Indication: BREAST CANCER
     Dosage: DAY1-14 EVERY 3 WEEKS FOR 4 CYCLES.
     Route: 048
     Dates: start: 20080206, end: 20080219
  2. EPIRUBICIN [Suspect]
     Indication: BREAST CANCER
     Dosage: GIVEN FOR 4 CYCLES.
     Route: 042
     Dates: start: 20071114

REACTIONS (5)
  - DIARRHOEA [None]
  - MUCOSAL INFLAMMATION [None]
  - NAUSEA [None]
  - URINARY TRACT INFECTION [None]
  - VOMITING [None]
